FAERS Safety Report 17145144 (Version 1)
Quarter: 2019Q4

REPORT INFORMATION
  Report Type: Spontaneous
  Country: US (occurrence: US)
  Receive Date: 20191212
  Receipt Date: 20191212
  Transmission Date: 20200122
  Serious: No
  Sender: FDA-Public Use
  Company Number: US-SA-2019SA341965

PATIENT
  Age: 73 Year
  Sex: Male

DRUGS (3)
  1. DUPIXENT [Suspect]
     Active Substance: DUPILUMAB
     Indication: ECZEMA
     Dosage: 600 MG, 1X
     Dates: start: 20191112, end: 20191112
  2. DUPIXENT [Suspect]
     Active Substance: DUPILUMAB
     Dosage: 300 MG
     Dates: start: 20191127
  3. CHLORINE [Suspect]
     Active Substance: CHLORINE

REACTIONS (3)
  - Drug ineffective [Unknown]
  - Pruritus [Unknown]
  - Pain of skin [Unknown]
